FAERS Safety Report 17976028 (Version 1)
Quarter: 2020Q3

REPORT INFORMATION
  Report Type: Spontaneous
  Country: US (occurrence: US)
  Receive Date: 20200702
  Receipt Date: 20200702
  Transmission Date: 20201103
  Serious: No
  Sender: FDA-Public Use
  Company Number: US-ALKERMES INC.-ALK-2020-002660

PATIENT

DRUGS (1)
  1. VIVITROL [Suspect]
     Active Substance: NALTREXONE
     Indication: DEPENDENCE
     Dosage: 380 MILLIGRAM, QMO
     Route: 030

REACTIONS (2)
  - Drug abuse [Unknown]
  - Treatment noncompliance [Unknown]
